FAERS Safety Report 9354159 (Version 1)
Quarter: 2013Q2

REPORT INFORMATION
  Report Type: Spontaneous
  Country: FR (occurrence: FR)
  Receive Date: 20130618
  Receipt Date: 20130618
  Transmission Date: 20140414
  Serious: Yes (Hospitalization)
  Sender: FDA-Public Use
  Company Number: FR-TEVA-412901ISR

PATIENT
  Age: 89 Year
  Sex: Female

DRUGS (1)
  1. FUROSEMIDE TEVA [Suspect]
     Indication: OEDEMA
     Route: 048
     Dates: start: 201304, end: 201305

REACTIONS (2)
  - Disorientation [Recovered/Resolved]
  - Memory impairment [Recovered/Resolved]
